FAERS Safety Report 4635981-4 (Version None)
Quarter: 2005Q2

REPORT INFORMATION
  Report Type: 
  Country: None (occurrence: None)
  Receive Date: 20050415
  Receipt Date: 20050411
  Transmission Date: 20051028
  Serious: Yes (Hospitalization, Other)
  Sender: FDA-Public Use
  Company Number: JP-BRISTOL-MYERS SQUIBB COMPANY-12929097

PATIENT
  Age: 29 Year
  Sex: Male

DRUGS (5)
  1. IFOSFAMIDE [Suspect]
     Indication: BONE SARCOMA
     Dates: start: 20020901, end: 20020901
  2. DOXORUBICIN HCL [Suspect]
     Indication: BONE SARCOMA
     Dates: start: 20020901, end: 20020901
  3. BLEOMYCIN SULFATE [Suspect]
     Indication: BONE SARCOMA
     Dates: start: 20020901, end: 20020901
  4. CISPLATIN [Suspect]
     Indication: BONE SARCOMA
     Dates: start: 20020901, end: 20020901
  5. METHOTREXATE [Suspect]
     Indication: BONE SARCOMA
     Dates: start: 20020901, end: 20020901

REACTIONS (1)
  - DEEP VEIN THROMBOSIS [None]
